FAERS Safety Report 18533628 (Version 1)
Quarter: 2020Q4

REPORT INFORMATION
  Report Type: Spontaneous
  Country: US (occurrence: US)
  Receive Date: 20201118
  Receipt Date: 20201118
  Transmission Date: 20210114
  Serious: Yes (Hospitalization)
  Sender: FDA-Public Use
  Company Number: None

PATIENT
  Age: 35 Year
  Sex: Female
  Weight: 50.6 kg

DRUGS (5)
  1. AMIODARONE [Suspect]
     Active Substance: AMIODARONE
     Indication: ARRHYTHMIA
     Route: 042
     Dates: start: 20201105, end: 20201105
  2. METHADONE [Suspect]
     Active Substance: METHADONE HYDROCHLORIDE
  3. BENADRYL [Suspect]
     Active Substance: DIPHENHYDRAMINE HYDROCHLORIDE
  4. METRONIDAZOLE. [Suspect]
     Active Substance: METRONIDAZOLE
     Indication: RESPIRATORY TRACT INFECTION
     Route: 042
     Dates: start: 20201105, end: 20201106
  5. COCAINE [Suspect]
     Active Substance: COCAINE

REACTIONS (2)
  - Intentional overdose [None]
  - Torsade de pointes [None]

NARRATIVE: CASE EVENT DATE: 20201106
